FAERS Safety Report 16015675 (Version 4)
Quarter: 2025Q3

REPORT INFORMATION
  Report Type: Spontaneous
  Country: EU (occurrence: EU)
  Receive Date: 20190228
  Receipt Date: 20250724
  Transmission Date: 20251021
  Serious: Yes (Life-Threatening, Hospitalization, Other)
  Sender: AUROBINDO
  Company Number: EU-AFSSAPS-RN20150023

PATIENT
  Age: 61 Year
  Sex: Female
  Weight: 76 kg

DRUGS (14)
  1. AMIODARONE [Interacting]
     Active Substance: AMIODARONE
     Indication: Arrhythmia
     Route: 048
     Dates: end: 20150112
  2. AMIODARONE [Interacting]
     Active Substance: AMIODARONE
     Indication: Cardiac disorder
     Dosage: 200 MILLIGRAM, ONCE A DAY
     Route: 048
     Dates: end: 20150112
  3. ATENOLOL [Interacting]
     Active Substance: ATENOLOL
     Indication: Hypertension
     Dosage: 50 MILLIGRAM, ONCE A DAY
     Route: 048
     Dates: start: 20150109, end: 20150112
  4. ATENOLOL [Interacting]
     Active Substance: ATENOLOL
     Indication: Cardiac disorder
     Route: 048
  5. DAKLINZA [Interacting]
     Active Substance: DACLATASVIR
     Indication: Chronic hepatitis C
     Route: 065
     Dates: start: 20150112, end: 20150112
  6. SOVALDI [Interacting]
     Active Substance: SOFOSBUVIR
     Indication: Chronic hepatitis C
     Route: 048
     Dates: start: 20150112, end: 20150112
  7. DACLATASVIR [Interacting]
     Active Substance: DACLATASVIR
     Indication: Chronic hepatitis C
     Route: 048
     Dates: start: 20150112, end: 20150112
  8. ATORVASTATIN [Concomitant]
     Active Substance: ATORVASTATIN
     Indication: Product used for unknown indication
     Route: 065
  9. BISOPROLOL [Concomitant]
     Active Substance: BISOPROLOL
     Indication: Product used for unknown indication
     Route: 065
     Dates: start: 20150109
  10. FLUINDIONE [Concomitant]
     Active Substance: FLUINDIONE
     Indication: Product used for unknown indication
     Route: 065
  11. LEVOTHYROXINE [Concomitant]
     Active Substance: LEVOTHYROXINE
     Indication: Product used for unknown indication
     Dosage: 75 MICROGRAM, ONCE A DAY
     Route: 048
  12. Previscan [Concomitant]
     Indication: Product used for unknown indication
     Dosage: 15 MILLIGRAM, ONCE A DAY
     Route: 048
  13. TAHOR [Concomitant]
     Active Substance: ATORVASTATIN CALCIUM
     Indication: Product used for unknown indication
     Route: 048
  14. TRAMADOL HYDROCHLORIDE [Concomitant]
     Active Substance: TRAMADOL HYDROCHLORIDE
     Indication: Product used for unknown indication
     Route: 048

REACTIONS (13)
  - Sinus node dysfunction [Recovered/Resolved]
  - Cardio-respiratory arrest [Recovered/Resolved]
  - Cardiac arrest [Recovering/Resolving]
  - Bradycardia [Recovered/Resolved]
  - Syncope [Recovered/Resolved]
  - Acute kidney injury [Unknown]
  - Respiratory failure [Unknown]
  - Pneumonia staphylococcal [Recovered/Resolved]
  - Depressed level of consciousness [Unknown]
  - Cardiac failure congestive [Unknown]
  - Dizziness [Unknown]
  - Drug interaction [Unknown]
  - Malaise [Recovered/Resolved]

NARRATIVE: CASE EVENT DATE: 20150112
